FAERS Safety Report 24826799 (Version 1)
Quarter: 2025Q1

REPORT INFORMATION
  Report Type: Spontaneous
  Country: US (occurrence: US)
  Receive Date: 20250109
  Receipt Date: 20250109
  Transmission Date: 20250409
  Serious: No
  Sender: JOHNSON AND JOHNSON
  Company Number: US-JNJFOC-20241286303

PATIENT
  Age: 43 Year
  Sex: Male

DRUGS (2)
  1. TREMFYA [Suspect]
     Active Substance: GUSELKUMAB
     Indication: Psoriasis
     Route: 058
  2. TREMFYA [Suspect]
     Active Substance: GUSELKUMAB
     Route: 058

REACTIONS (4)
  - Accidental exposure to product [Unknown]
  - Needle issue [Unknown]
  - Underdose [Unknown]
  - Device defective [Unknown]

NARRATIVE: CASE EVENT DATE: 20241224
